FAERS Safety Report 8485765-4 (Version None)
Quarter: 2012Q3

REPORT INFORMATION
  Report Type: 
  Country: None (occurrence: None)
  Receive Date: 20120703
  Receipt Date: 20120625
  Transmission Date: 20120928
  Serious: Yes (Hospitalization, Other)
  Sender: FDA-Public Use
  Company Number: US-ABBOTT-12P-163-0950036-00

PATIENT
  Sex: Female
  Weight: 70.37 kg

DRUGS (3)
  1. MULTI-VITAMINS [Concomitant]
     Indication: PRODUCT USED FOR UNKNOWN INDICATION
  2. HUMIRA [Suspect]
     Indication: CROHN'S DISEASE
     Route: 058
     Dates: start: 20111201
  3. MERCAPTOPURINE [Concomitant]
     Indication: CROHN'S DISEASE

REACTIONS (9)
  - PROCTALGIA [None]
  - DIARRHOEA [None]
  - PREMATURE LABOUR [None]
  - DRUG INEFFECTIVE [None]
  - RECTAL HAEMORRHAGE [None]
  - DIZZINESS [None]
  - CROHN'S DISEASE [None]
  - UTERINE INFECTION [None]
  - BLOOD GLUCOSE DECREASED [None]
